FAERS Safety Report 6289821-0 (Version None)
Quarter: 2009Q3

REPORT INFORMATION
  Report Type: 
  Country: None (occurrence: None)
  Receive Date: 20090730
  Receipt Date: 20080808
  Transmission Date: 20100115
  Serious: No
  Sender: FDA-Public Use
  Company Number: US-BRISTOL-MYERS SQUIBB COMPANY-14295612

PATIENT
  Age: 85 Year
  Sex: Female
  Weight: 45 kg

DRUGS (9)
  1. COUMADIN [Suspect]
     Indication: ATRIAL FIBRILLATION
     Dosage: 2.5MG, HALF TABLET 6 DAYS PER WEEK AND 1 TABLET 1 DAY PER WEEK FOR ABOUT 3 MONTHS.
  2. ZOCOR [Concomitant]
  3. BETAPACE [Concomitant]
  4. REMERON [Concomitant]
  5. ATIVAN [Concomitant]
  6. SIMETICONE [Concomitant]
  7. IMODIUM [Concomitant]
  8. MILK OF MAGNESIA TAB [Concomitant]
  9. MAGNESIUM CITRATE [Concomitant]

REACTIONS (1)
  - HEADACHE [None]
